FAERS Safety Report 7479345-7 (Version None)
Quarter: 2011Q2

REPORT INFORMATION
  Report Type: 
  Country: None (occurrence: None)
  Receive Date: 20110513
  Receipt Date: 20110511
  Transmission Date: 20111010
  Serious: Yes (Life-Threatening, Hospitalization)
  Sender: FDA-Public Use
  Company Number: US-B.I. PHARMACEUTICALS,INC./RIDGEFIELD-2011-BP-12079BP

PATIENT
  Age: 85 Year
  Sex: Female
  Weight: 78.93 kg

DRUGS (6)
  1. SYNTHROID [Concomitant]
     Dosage: 25 MCG
  2. COZAAR [Concomitant]
     Dosage: 25 MCG
  3. METOPROLOL TARTRATE [Concomitant]
     Dosage: 100 MG
  4. PRADAXA [Suspect]
     Indication: ATRIAL FIBRILLATION
     Dosage: 300 MG
     Route: 048
     Dates: start: 20110419, end: 20110422
  5. FUROSEMIDE [Concomitant]
     Dosage: 80 MG
  6. SIMVASTATIN [Concomitant]
     Dosage: 20 MG

REACTIONS (2)
  - ASTHENIA [None]
  - GASTROINTESTINAL HAEMORRHAGE [None]
